FAERS Safety Report 15067209 (Version 6)
Quarter: 2020Q2

REPORT INFORMATION
  Report Type: Spontaneous
  Country: BE (occurrence: BE)
  Receive Date: 20180626
  Receipt Date: 20200402
  Transmission Date: 20200713
  Serious: Yes (Life-Threatening, Hospitalization, Disabling, Other)
  Sender: FDA-Public Use
  Company Number: PHHY2017BE013915

PATIENT
  Age: 61 Year
  Sex: Male

DRUGS (28)
  1. MELPHALAN. [Suspect]
     Active Substance: MELPHALAN
     Dosage: ON DAY 6, CYCLICAL
     Route: 065
  2. CYTARABINE. [Suspect]
     Active Substance: CYTARABINE
     Indication: NON-HODGKIN^S LYMPHOMA
     Dosage: 100 MG/M2, UNK (ON DAY 2,3,4,5)
     Route: 065
  3. RITUXIMAB. [Suspect]
     Active Substance: RITUXIMAB
     Indication: NON-HODGKIN^S LYMPHOMA
     Dosage: UNK, CYCLIC
     Route: 065
  4. CYCLOPHOSPHAMIDE. [Suspect]
     Active Substance: CYCLOPHOSPHAMIDE
     Indication: NON-HODGKIN^S LYMPHOMA
     Dosage: R-CHOP
     Route: 065
  5. CYCLOPHOSPHAMIDE. [Suspect]
     Active Substance: CYCLOPHOSPHAMIDE
     Indication: HAEMATOPOIETIC STEM CELL MOBILISATION
     Dosage: UNK
     Route: 065
     Dates: start: 201308
  6. CARBOPLATIN. [Suspect]
     Active Substance: CARBOPLATIN
     Indication: NON-HODGKIN^S LYMPHOMA
     Dosage: R-ICE
     Route: 065
  7. GANCICLOVIR. [Suspect]
     Active Substance: GANCICLOVIR
     Indication: CYTOMEGALOVIRUS TEST POSITIVE
     Dosage: UNK
     Route: 065
  8. RITUXIMAB. [Suspect]
     Active Substance: RITUXIMAB
     Dosage: R-ICE
     Route: 065
  9. RITUXIMAB. [Suspect]
     Active Substance: RITUXIMAB
     Dosage: R-CHOP
     Route: 065
  10. DEXAMETHASONE. [Suspect]
     Active Substance: DEXAMETHASONE
     Dosage: R-DHAP, CYCLICAL AS SECOND LINE THERAPY
     Route: 065
  11. CYTARABINE. [Suspect]
     Active Substance: CYTARABINE
     Dosage: 2 X 200 MG/M2 DAY 2-5, CYCLIC
     Route: 065
  12. CISPLATIN. [Suspect]
     Active Substance: CISPLATIN
     Indication: NON-HODGKIN^S LYMPHOMA
     Dosage: R-DHAP, CYCLIC
     Route: 065
  13. PREDNISONE. [Suspect]
     Active Substance: PREDNISONE
     Indication: NON-HODGKIN^S LYMPHOMA
     Dosage: R-CHOP
     Route: 065
  14. RITUXIMAB. [Suspect]
     Active Substance: RITUXIMAB
     Dosage: R-DHAP, 1 CYCLICAL
     Route: 065
  15. MELPHALAN. [Suspect]
     Active Substance: MELPHALAN
     Indication: NON-HODGKIN^S LYMPHOMA
     Dosage: ON DAY 6
     Route: 065
  16. MELPHALAN. [Suspect]
     Active Substance: MELPHALAN
     Dosage: ON DAY 2 TO 6
     Route: 065
  17. VINCRISTINE [Suspect]
     Active Substance: VINCRISTINE
     Indication: KAPOSI^S SARCOMA
     Dosage: R-CHOP
     Route: 065
  18. CARMUSTINE. [Suspect]
     Active Substance: CARMUSTINE
     Indication: NON-HODGKIN^S LYMPHOMA
     Dosage: ON DAY 1
     Route: 065
  19. AMLODIPINE [Concomitant]
     Active Substance: AMLODIPINE BESYLATE
     Indication: HYPERTENSION
     Dosage: UNK
     Route: 065
  20. ETOPOSIDE. [Suspect]
     Active Substance: ETOPOSIDE
     Dosage: ON DAY 2 TO 5
     Route: 065
  21. ETOPOSIDE. [Suspect]
     Active Substance: ETOPOSIDE
     Dosage: 15 MG/M2 ON DAY 2,3,4 AND 5 CYCLIC
     Route: 065
  22. ETOPOSIDE. [Suspect]
     Active Substance: ETOPOSIDE
     Dosage: R-ICE, ON DAY 2 TO 5, CYCLICAL
     Route: 065
  23. CARMUSTINE. [Suspect]
     Active Substance: CARMUSTINE
     Dosage: 300 MG/M2, UNK
     Route: 065
  24. CYTARABINE. [Suspect]
     Active Substance: CYTARABINE
     Dosage: R-DHAP; CYCLICAL
     Route: 065
  25. DOXORUBICIN [Suspect]
     Active Substance: DOXORUBICIN
     Indication: NON-HODGKIN^S LYMPHOMA
     Dosage: R-CHOP
     Route: 065
  26. ETOPOSIDE. [Suspect]
     Active Substance: ETOPOSIDE
     Indication: NON-HODGKIN^S LYMPHOMA
     Dosage: UNK, CYCLIC
     Route: 065
  27. DEXAMETHASONE. [Suspect]
     Active Substance: DEXAMETHASONE
     Indication: NON-HODGKIN^S LYMPHOMA
     Dosage: UNK, CYCLIC
     Route: 065
  28. IFOSFAMIDE. [Suspect]
     Active Substance: IFOSFAMIDE
     Indication: NON-HODGKIN^S LYMPHOMA
     Dosage: R-ICE
     Route: 065

REACTIONS (6)
  - Human herpesvirus 8 infection [Unknown]
  - Kaposi^s sarcoma [Recovered/Resolved]
  - Off label use [Unknown]
  - Immunosuppression [Recovered/Resolved]
  - Product use in unapproved indication [Unknown]
  - Tinnitus [Unknown]

NARRATIVE: CASE EVENT DATE: 2013
